FAERS Safety Report 16188217 (Version 4)
Quarter: 2019Q3

REPORT INFORMATION
  Report Type: Report from Study
  Country: None (occurrence: CA)
  Receive Date: 20190412
  Receipt Date: 20190920
  Transmission Date: 20191004
  Serious: Yes (Hospitalization, Other)
  Sender: FDA-Public Use
  Company Number: CA-ABBVIE-19S-028-2739857-00

PATIENT
  Sex: Male

DRUGS (2)
  1. LUPRON DEPOT [Suspect]
     Active Substance: LEUPROLIDE ACETATE
     Indication: PROSTATE CANCER
     Route: 030
     Dates: start: 20180417, end: 2019
  2. LUPRON DEPOT [Suspect]
     Active Substance: LEUPROLIDE ACETATE
     Route: 030
     Dates: start: 2019, end: 20190816

REACTIONS (8)
  - General physical health deterioration [Unknown]
  - Asthenia [Unknown]
  - Intestinal obstruction [Unknown]
  - Impaired quality of life [Unknown]
  - Metastasis [Unknown]
  - Ascites [Unknown]
  - Suicidal ideation [Unknown]
  - Weight decreased [Unknown]
